FAERS Safety Report 9067489 (Version 1)
Quarter: 2013Q1

REPORT INFORMATION
  Report Type: Spontaneous
  Country: GB (occurrence: GB)
  Receive Date: 20130214
  Receipt Date: 20130214
  Transmission Date: 20140127
  Serious: Yes (Other)
  Sender: FDA-Public Use
  Company Number: GB-MYLANLABS-2013S1002423

PATIENT
  Age: 37 Year
  Sex: Male

DRUGS (3)
  1. IRINOTECAN [Suspect]
     Indication: BRAIN NEOPLASM
  2. AVASTIN [Suspect]
     Indication: BRAIN NEOPLASM
  3. LOMUSTINE [Suspect]
     Indication: BRAIN NEOPLASM

REACTIONS (3)
  - Agitation [Unknown]
  - Gait disturbance [Unknown]
  - Incontinence [Unknown]
